FAERS Safety Report 5765084-7 (Version None)
Quarter: 2008Q2

REPORT INFORMATION
  Report Type: 
  Country: None (occurrence: None)
  Receive Date: 20080611
  Receipt Date: 20080530
  Transmission Date: 20081010
  Serious: Yes (Disabling)
  Sender: FDA-Public Use
  Company Number: GB-JNJFOC-20080403786

PATIENT
  Sex: Female
  Weight: 46.7 kg

DRUGS (6)
  1. PREZISTA [Suspect]
     Indication: HIV INFECTION
     Route: 048
  2. RITONAVIR [Suspect]
     Indication: HIV INFECTION
     Route: 065
  3. MIRTAZAPINE [Interacting]
     Indication: DEPRESSION
     Route: 065
  4. INTELENCE [Concomitant]
     Indication: HIV INFECTION
     Route: 048
  5. TRUVADA [Concomitant]
     Indication: HIV INFECTION
     Route: 065
  6. METHADONE HCL [Concomitant]
     Route: 065

REACTIONS (3)
  - DRUG INTERACTION [None]
  - LIPOHYPERTROPHY [None]
  - WEIGHT INCREASED [None]
